FAERS Safety Report 5304935-7 (Version None)
Quarter: 2007Q2

REPORT INFORMATION
  Report Type: 
  Country: None (occurrence: None)
  Receive Date: 20070423
  Receipt Date: 20070416
  Transmission Date: 20071010
  Serious: Yes (Death, Other)
  Sender: FDA-Public Use
  Company Number: US-SHR-US-2007-013173

PATIENT
  Age: 52 Year
  Sex: Female

DRUGS (7)
  1. MAGNEVIST [Suspect]
     Dosage: 20 ML, 1 DOSE
     Route: 042
     Dates: start: 20000616, end: 20000616
  2. MAGNEVIST [Suspect]
     Dosage: 20 ML, 1 DOSE
     Route: 042
     Dates: start: 20010822, end: 20010822
  3. MAGNEVIST [Suspect]
     Dosage: 20 ML, 1 DOSE
     Route: 042
     Dates: start: 20010829, end: 20010829
  4. MAGNEVIST [Suspect]
     Dosage: 20 ML, 1 DOSE
     Route: 042
     Dates: start: 20020503, end: 20020503
  5. MAGNEVIST [Suspect]
     Dosage: 20 ML, 1 DOSE
     Route: 042
     Dates: start: 20020508, end: 20020508
  6. MAGNEVIST [Suspect]
     Dosage: 60 ML, 1 DOSE
     Route: 042
     Dates: start: 20020530, end: 20020530
  7. ANTI-COAGULATION THERAPY [Concomitant]

REACTIONS (3)
  - DEATH [None]
  - NEPHROGENIC FIBROSING DERMOPATHY [None]
  - SERUM FERRITIN INCREASED [None]
